FAERS Safety Report 12835196 (Version 5)
Quarter: 2017Q1

REPORT INFORMATION
  Report Type: Spontaneous
  Country: US (occurrence: US)
  Receive Date: 20161011
  Receipt Date: 20170322
  Transmission Date: 20170428
  Serious: No
  Sender: FDA-Public Use
  Company Number: US-TAIHO ONCOLOGY INC-EU-2016-02585

PATIENT
  Age: 70 Year
  Sex: Female

DRUGS (9)
  1. SODIUM BICARBONATE. [Concomitant]
     Active Substance: SODIUM BICARBONATE
     Dosage: NI
  2. IBUPROFEN. [Concomitant]
     Active Substance: IBUPROFEN
     Dosage: NI
  3. LONSURF [Suspect]
     Active Substance: TIPIRACIL HYDROCHLORIDE\TRIFLURIDINE
     Indication: COLORECTAL CANCER METASTATIC
     Route: 048
     Dates: start: 20160903, end: 20161123
  4. TYLENOL [Concomitant]
     Active Substance: ACETAMINOPHEN
     Dosage: NI
  5. XARELTO [Concomitant]
     Active Substance: RIVAROXABAN
     Dosage: NI
  6. TRAMADOL. [Concomitant]
     Active Substance: TRAMADOL
     Dosage: NI
  7. POTASSIUM [Concomitant]
     Active Substance: POTASSIUM
     Dosage: NI
  8. LORAZEPAM. [Concomitant]
     Active Substance: LORAZEPAM
     Dosage: NI
  9. DEXAMETHASONE. [Concomitant]
     Active Substance: DEXAMETHASONE
     Dosage: NI

REACTIONS (5)
  - Alopecia [Unknown]
  - Nausea [Not Recovered/Not Resolved]
  - Pain [Unknown]
  - Fatigue [Not Recovered/Not Resolved]
  - Neutropenia [Recovered/Resolved]

NARRATIVE: CASE EVENT DATE: 2016
